FAERS Safety Report 21143813 (Version 4)
Quarter: 2024Q1

REPORT INFORMATION
  Report Type: Report from Study
  Country: AU (occurrence: AU)
  Receive Date: 20220728
  Receipt Date: 20240216
  Transmission Date: 20240410
  Serious: Yes (Hospitalization, Other)
  Sender: FDA-Public Use
  Company Number: AU-NOVARTISPH-NVSC2022AU148225

PATIENT
  Sex: Female

DRUGS (4)
  1. COSENTYX [Suspect]
     Active Substance: SECUKINUMAB
     Indication: Psoriasis
     Dosage: UNK, QMO
     Route: 058
     Dates: start: 20220624
  2. COSENTYX [Suspect]
     Active Substance: SECUKINUMAB
     Dosage: UNK, QW
     Route: 058
     Dates: start: 20220624
  3. COSENTYX [Suspect]
     Active Substance: SECUKINUMAB
     Dosage: UNK UNK, OTHER (EVERY 5 WEEKS)
     Route: 058
     Dates: start: 20220624
  4. INSULIN NOS [Concomitant]
     Active Substance: INSULIN NOS
     Indication: Product used for unknown indication
     Dosage: UNK
     Route: 065

REACTIONS (13)
  - Tachycardia [Unknown]
  - Arrhythmia [Unknown]
  - Rectal haemorrhage [Unknown]
  - Squamous cell carcinoma [Unknown]
  - Weight decreased [Unknown]
  - Pruritus [Recovered/Resolved]
  - Blood glucose decreased [Unknown]
  - Back pain [Unknown]
  - Headache [Unknown]
  - Heart rate decreased [Unknown]
  - Blood pressure increased [Unknown]
  - Dizziness [Unknown]
  - Decreased appetite [Unknown]
